FAERS Safety Report 10095561 (Version 2)
Quarter: 2014Q2

REPORT INFORMATION
  Report Type: Report from Study
  Country: KR (occurrence: KR)
  Receive Date: 20140422
  Receipt Date: 20140506
  Transmission Date: 20141212
  Serious: Yes (Hospitalization)
  Sender: FDA-Public Use
  Company Number: KR-SA-2014SA045777

PATIENT
  Age: 46 Year
  Sex: Male
  Weight: 90 kg

DRUGS (2)
  1. LANTUS [Suspect]
     Indication: DIABETES MELLITUS
     Dosage: DOSE:38 UNIT(S)
     Route: 058
     Dates: start: 201203
  2. NOVORAPID [Suspect]
     Indication: DIABETES MELLITUS
     Dosage: 0-30-24 U
     Route: 058
     Dates: start: 201203

REACTIONS (1)
  - Muscle rupture [Recovering/Resolving]
